FAERS Safety Report 11301049 (Version 1)
Quarter: 2015Q3

REPORT INFORMATION
  Report Type: Spontaneous
  Country: US (occurrence: None)
  Receive Date: 20150722
  Receipt Date: 20150722
  Transmission Date: 20151125
  Serious: Yes (Hospitalization, Other)
  Sender: FDA-Public Use
  Company Number: ADR-2015-00734

PATIENT
  Age: 38 Year
  Sex: Female

DRUGS (2)
  1. BACLOFEN INTRATHECAL [Suspect]
     Active Substance: BACLOFEN
     Indication: MUSCLE SPASTICITY
  2. MORPHINE INTRATHECAL [Suspect]
     Active Substance: MORPHINE

REACTIONS (12)
  - Therapeutic response decreased [None]
  - Immobile [None]
  - Muscle rigidity [None]
  - Medical device site granuloma [None]
  - Back injury [None]
  - Seizure like phenomena [None]
  - Catheter site extravasation [None]
  - Drug effect decreased [None]
  - Incorrect dose administered by device [None]
  - General physical health deterioration [None]
  - Fall [None]
  - Respiratory arrest [None]
